FAERS Safety Report 7955195-X (Version None)
Quarter: 2011Q4

REPORT INFORMATION
  Report Type: 
  Country: None (occurrence: None)
  Receive Date: 20111202
  Receipt Date: 20111129
  Transmission Date: 20120403
  Serious: Yes (Other)
  Sender: FDA-Public Use
  Company Number: PHEH2005US11596

PATIENT
  Sex: Female
  Weight: 68.027 kg

DRUGS (29)
  1. VIVELLE [Suspect]
     Indication: HORMONE REPLACEMENT THERAPY
     Dosage: 0.05MG
     Route: 062
     Dates: start: 19981230
  2. COMBIPATCH [Suspect]
     Indication: MENOPAUSE
     Dosage: 50/140MCG
     Route: 062
     Dates: start: 19981219
  3. ALDACTONE [Concomitant]
     Dosage: 100 MG, UNK
  4. WELLBUTRIN [Concomitant]
  5. FEMARA [Concomitant]
  6. REMERON [Concomitant]
     Dosage: 30 MG, UNK
  7. PAXIL [Concomitant]
     Indication: ANXIETY
     Dosage: UNK
     Dates: start: 19980101
  8. DYAZIDE [Concomitant]
     Dosage: 25MG/37.5 MG
     Route: 048
  9. SPIRONOLACTONE [Concomitant]
     Dosage: 100MG
  10. NOLVADEX [Concomitant]
     Dosage: 20 MG, UNK
  11. GYNODIOL [Suspect]
     Dosage: 1 MG, UNK
  12. VIVELLE [Suspect]
     Dosage: 0.025MG
     Route: 061
  13. PROMETRIUM [Suspect]
     Indication: HORMONE REPLACEMENT THERAPY
     Dosage: 100MG
     Dates: start: 19981230
  14. PREMPRO [Suspect]
     Indication: MENOPAUSE
     Dosage: 2.5MG
     Dates: start: 19980313
  15. PROZAC [Concomitant]
     Dosage: 10MG
  16. ZYBAN [Concomitant]
     Dosage: 150MG
  17. XENICAL [Concomitant]
     Dosage: 120MG
  18. MIACALCIN [Concomitant]
     Dates: start: 20031101
  19. VAGIFEM [Suspect]
     Dosage: 25 UG, UNK
  20. AROMASIN [Concomitant]
  21. ALPRAZOLAM [Concomitant]
     Dosage: 0.25 MG, UNK
  22. VIVELLE [Suspect]
     Dosage: .075 MG, UNK
     Route: 062
  23. ESTRADIOL [Suspect]
     Dosage: 1 MG, UNK
  24. GYNODIOL [Suspect]
     Indication: HORMONE REPLACEMENT THERAPY
     Dosage: 0.5 MG, UNK
  25. HYDROCHLOROTHIAZIDE [Concomitant]
     Dosage: 50 MG, UNK
  26. PROVENTIL [Concomitant]
  27. ZYRTEC [Concomitant]
  28. ESTRADIOL [Suspect]
     Indication: MENOPAUSE
     Dosage: 0.5MG
     Dates: start: 19990312
  29. BUSPAR [Concomitant]
     Dosage: 10 MG, UNK

REACTIONS (32)
  - LYMPH NODE FIBROSIS [None]
  - CEREBRAL ATROPHY [None]
  - ARTERIOSCLEROSIS [None]
  - OEDEMA [None]
  - OEDEMA PERIPHERAL [None]
  - CELLULITIS [None]
  - DEEP VEIN THROMBOSIS [None]
  - OSTEOARTHRITIS [None]
  - INTERVERTEBRAL DISC DISORDER [None]
  - ABDOMINAL DISTENSION [None]
  - SCAR [None]
  - LYMPHADENOPATHY [None]
  - DIZZINESS [None]
  - BREAST CANCER [None]
  - METASTASES TO SPINE [None]
  - OSTEOPENIA [None]
  - UTERINE LEIOMYOMA [None]
  - HIRSUTISM [None]
  - METASTASES TO LYMPH NODES [None]
  - METASTASES TO PERITONEUM [None]
  - MITRAL VALVE INCOMPETENCE [None]
  - LYMPHOEDEMA [None]
  - BREAST DISORDER [None]
  - CARDIAC MURMUR [None]
  - UTERINE DISORDER [None]
  - BREAST PAIN [None]
  - ANXIETY [None]
  - MUSCULOSKELETAL PAIN [None]
  - CEREBRAL SMALL VESSEL ISCHAEMIC DISEASE [None]
  - FALL [None]
  - BONE PAIN [None]
  - METASTASES TO BONE [None]
